FAERS Safety Report 5669795-3 (Version None)
Quarter: 2008Q1

REPORT INFORMATION
  Report Type: 
  Country: None (occurrence: None)
  Receive Date: 20080314
  Receipt Date: 20080314
  Transmission Date: 20080703
  Serious: No
  Sender: FDA-Public Use
  Company Number: None

PATIENT
  Age: 48 Year
  Sex: Male
  Weight: 95.2 kg

DRUGS (2)
  1. LOVASTATIN [Suspect]
     Indication: HYPERLIPIDAEMIA
     Dosage: 10MG PM PO
     Route: 048
     Dates: start: 20070823, end: 20080117
  2. LOVASTATIN [Suspect]
     Indication: HYPERLIPIDAEMIA
     Dosage: 20MG PM PO
     Route: 048
     Dates: start: 20080117, end: 20080221

REACTIONS (2)
  - ASTHENIA [None]
  - BLOOD CREATINE PHOSPHOKINASE INCREASED [None]
